FAERS Safety Report 7565271-1 (Version None)
Quarter: 2011Q2

REPORT INFORMATION
  Report Type: 
  Country: None (occurrence: None)
  Receive Date: 20110622
  Receipt Date: 20110607
  Transmission Date: 20111010
  Serious: Yes (Other)
  Sender: FDA-Public Use
  Company Number: JP-GENENTECH-316298

PATIENT
  Sex: Male

DRUGS (14)
  1. LUCENTIS [Suspect]
     Indication: AGE-RELATED MACULAR DEGENERATION
     Dosage: 0.05 ML, UNKNOWN
     Route: 031
     Dates: start: 20090409
  2. LUCENTIS [Suspect]
     Dosage: 0.05 ML, UNK
     Route: 031
     Dates: start: 20090604
  3. LUCENTIS [Suspect]
     Dosage: 0.05 ML, UNK
     Route: 031
     Dates: start: 20100727
  4. LUCENTIS [Suspect]
     Dosage: 0.05 ML, UNK
     Route: 031
     Dates: start: 20110202
  5. LUCENTIS [Suspect]
     Dosage: 0.05 ML, UNK
     Route: 031
     Dates: start: 20101025
  6. LUCENTIS [Suspect]
     Dosage: 0.05 ML, UNK
     Route: 031
     Dates: start: 20100623
  7. LUCENTIS [Suspect]
     Dosage: 0.05 ML, UNK
     Route: 031
     Dates: start: 20101213
  8. LUCENTIS [Suspect]
     Dosage: 0.05 ML, UNK
     Route: 031
     Dates: start: 20110310
  9. LUCENTIS [Suspect]
     Dosage: 0.05 ML, UNK
     Route: 031
     Dates: start: 20090507
  10. LUCENTIS [Suspect]
     Dosage: 0.05 ML, UNK
     Route: 031
     Dates: start: 20100823
  11. LUCENTIS [Suspect]
     Dosage: 0.05 ML, UNK
     Route: 031
     Dates: start: 20101018
  12. VISUDYNE [Concomitant]
     Indication: PRODUCT USED FOR UNKNOWN INDICATION
     Dosage: UNK
     Dates: start: 20070701, end: 20070701
  13. LUCENTIS [Suspect]
     Dosage: 0.05 ML, UNK
     Route: 031
     Dates: start: 20101220
  14. MOXIFLOXACIN HYDROCHLORIDE [Concomitant]
     Indication: PRODUCT USED FOR UNKNOWN INDICATION
     Dosage: UNK
     Dates: start: 20090401, end: 20110301

REACTIONS (4)
  - INAPPROPRIATE SCHEDULE OF DRUG ADMINISTRATION [None]
  - CHOROIDAL HAEMATOMA [None]
  - VITREOUS HAEMORRHAGE [None]
  - CATARACT [None]
